FAERS Safety Report 20524092 (Version 1)
Quarter: 2022Q1

REPORT INFORMATION
  Report Type: Spontaneous
  Country: US (occurrence: US)
  Receive Date: 20220228
  Receipt Date: 20220228
  Transmission Date: 20220423
  Serious: No
  Sender: FDA-Public Use
  Company Number: US-AMGEN-USASP2022031897

PATIENT
  Age: 8 Year
  Sex: Male
  Weight: 11.5 kg

DRUGS (4)
  1. INFLIXIMAB [Suspect]
     Active Substance: INFLIXIMAB
     Indication: Arthritis
     Dosage: UNK
     Route: 065
  2. ACETAMINOPHEN [Concomitant]
     Active Substance: ACETAMINOPHEN
     Indication: Autoinflammatory disease
     Dosage: UNK UNK, AS NECESSARY
  3. NAPROXEN [Concomitant]
     Active Substance: NAPROXEN
     Indication: Autoinflammatory disease
     Dosage: UNK UNK, AS NECESSARY
  4. PREDNISOLONE [Concomitant]
     Active Substance: PREDNISOLONE
     Indication: Proteinuria
     Dosage: 2 MG/KG

REACTIONS (2)
  - Drug effective for unapproved indication [Unknown]
  - Off label use [Unknown]
